FAERS Safety Report 5724485-3 (Version None)
Quarter: 2008Q2

REPORT INFORMATION
  Report Type: 
  Country: None (occurrence: None)
  Receive Date: 20080429
  Receipt Date: 20080416
  Transmission Date: 20081010
  Serious: Yes (Other)
  Sender: FDA-Public Use
  Company Number: E2020-02420-SPO-JP

PATIENT
  Age: 86 Year
  Sex: Male

DRUGS (5)
  1. ARICEPT [Suspect]
     Indication: DEMENTIA ALZHEIMER'S TYPE
     Dosage: 5 MG, 1 IN 1 D, ORAL; 5 MG, 1 IN 1 D, ORAL
     Route: 048
     Dates: start: 20050101, end: 20070701
  2. ARICEPT [Suspect]
     Indication: DEMENTIA ALZHEIMER'S TYPE
     Dosage: 5 MG, 1 IN 1 D, ORAL; 5 MG, 1 IN 1 D, ORAL
     Route: 048
     Dates: start: 20070701, end: 20070701
  3. SYMMETREL [Concomitant]
  4. NIVADIL (NILVADIPINE) [Concomitant]
  5. EVIPROSTAT (EVIPROSTAT) [Concomitant]

REACTIONS (2)
  - PLEUROTHOTONUS [None]
  - PNEUMONIA [None]
